FAERS Safety Report 5126170-8 (Version None)
Quarter: 2006Q3

REPORT INFORMATION
  Report Type: 
  Country: None (occurrence: None)
  Receive Date: 20060823
  Receipt Date: 20060315
  Transmission Date: 20061208
  Serious: Yes (Other)
  Sender: FDA-Public Use
  Company Number: 2006001563

PATIENT
  Age: 80 Year
  Sex: Male
  Weight: 77.1115 kg

DRUGS (4)
  1. NORVASC [Suspect]
     Indication: HYPERTENSION
     Dosage: ^POSSIBLY 5 MG^ (1 IN 1 D),ORAL
     Route: 048
     Dates: start: 20051214, end: 20051214
  2. VISUDYNE [Concomitant]
  3. ACCUPRIL [Concomitant]
  4. HYDROCHLOROTHIAZIDE [Concomitant]

REACTIONS (1)
  - VISUAL DISTURBANCE [None]
